FAERS Safety Report 23974061 (Version 2)
Quarter: 2024Q3

REPORT INFORMATION
  Report Type: Spontaneous
  Country: JP (occurrence: JP)
  Receive Date: 20240613
  Receipt Date: 20240701
  Transmission Date: 20241017
  Serious: Yes (Death, Life-Threatening, Other)
  Sender: SANOFI AVENTIS
  Company Number: JP-SAKK-2024SA175148AA

PATIENT
  Age: 70 Year
  Sex: Female
  Weight: 50 kg

DRUGS (3)
  1. FABRAZYME [Suspect]
     Active Substance: AGALSIDASE BETA
     Indication: Fabry^s disease
     Dosage: DAILY DOSE: 1V, QOW
     Route: 041
     Dates: start: 2014, end: 202405
  2. FABRAZYME [Suspect]
     Active Substance: AGALSIDASE BETA
     Indication: Fabry^s disease
     Dosage: DAILY DOSE: 3V, QOW
     Route: 041
     Dates: start: 2014, end: 202405
  3. ENTRESTO [Suspect]
     Active Substance: SACUBITRIL\VALSARTAN
     Indication: Product used for unknown indication
     Route: 065

REACTIONS (3)
  - Cardiac failure [Fatal]
  - Altered state of consciousness [Unknown]
  - Disease progression [Unknown]

NARRATIVE: CASE EVENT DATE: 20200101
